FAERS Safety Report 17481129 (Version 3)
Quarter: 2020Q2

REPORT INFORMATION
  Report Type: Spontaneous
  Country: DE (occurrence: DE)
  Receive Date: 20200302
  Receipt Date: 20200514
  Transmission Date: 20200713
  Serious: Yes (Other)
  Sender: FDA-Public Use
  Company Number: DE-BRISTOL-MYERS SQUIBB COMPANY-BMS-2020-016171

PATIENT
  Age: 77 Year
  Sex: Male

DRUGS (1)
  1. OPDIVO [Suspect]
     Active Substance: NIVOLUMAB
     Indication: RENAL CELL CARCINOMA
     Dosage: UNAV.
     Route: 065
     Dates: start: 201709

REACTIONS (4)
  - Psoriasis [Not Recovered/Not Resolved]
  - Decreased appetite [Unknown]
  - Acute myocardial infarction [Unknown]
  - Dry mouth [Unknown]

NARRATIVE: CASE EVENT DATE: 201804
